FAERS Safety Report 10309627 (Version 1)
Quarter: 2014Q3

REPORT INFORMATION
  Report Type: Spontaneous
  Country: NL (occurrence: NL)
  Receive Date: 20140717
  Receipt Date: 20140717
  Transmission Date: 20150326
  Serious: Yes (Death, Hospitalization)
  Sender: FDA-Public Use
  Company Number: NL-AMGEN INC.-NLDSP2013094360

PATIENT
  Age: 84 Year
  Sex: Female

DRUGS (1)
  1. XGEVA [Suspect]
     Active Substance: DENOSUMAB
     Indication: PROPHYLAXIS
     Dosage: 1.7 ML, Q4WK
     Route: 058
     Dates: start: 20131009, end: 20131210

REACTIONS (1)
  - Death [Fatal]

NARRATIVE: CASE EVENT DATE: 20131210
